FAERS Safety Report 6021535-4 (Version None)
Quarter: 2008Q4

REPORT INFORMATION
  Report Type: 
  Country: None (occurrence: None)
  Receive Date: 20081229
  Receipt Date: 20081223
  Transmission Date: 20090506
  Serious: Yes (Death, Hospitalization)
  Sender: FDA-Public Use
  Company Number: US-BRISTOL-MYERS SQUIBB COMPANY-14431217

PATIENT
  Age: 48 Year
  Sex: Female

DRUGS (6)
  1. IXEMPRA KIT [Suspect]
     Indication: BREAST CANCER METASTATIC
     Route: 042
     Dates: start: 20081105, end: 20081105
  2. XELODA [Suspect]
     Dosage: TAKEN 2500MG BID FROM NOV-2007 TO MAY--2008
     Dates: start: 20071101, end: 20081101
  3. ALOXI [Concomitant]
  4. DECADRON [Concomitant]
  5. TAGAMET [Concomitant]
  6. BENADRYL [Concomitant]

REACTIONS (1)
  - ALVEOLITIS ALLERGIC [None]
